FAERS Safety Report 19495222 (Version 3)
Quarter: 2021Q4

REPORT INFORMATION
  Report Type: Spontaneous
  Country: CA (occurrence: CA)
  Receive Date: 20210706
  Receipt Date: 20211006
  Transmission Date: 20220303
  Serious: Yes (Hospitalization, Other)
  Sender: FDA-Public Use
  Company Number: CA-CELLTRION INC.-2021CA006272

PATIENT

DRUGS (8)
  1. INFLECTRA [Suspect]
     Active Substance: INFLIXIMAB-DYYB
     Indication: Colitis ulcerative
     Dosage: 400 MG, WEEK 0, 2, AND 6 THEN: Q 8 WEEKS (WEEK 0)
     Route: 042
     Dates: start: 20210413, end: 20210602
  2. INFLECTRA [Suspect]
     Active Substance: INFLIXIMAB-DYYB
     Dosage: 400 MG, WEEK 0, 2, AND 6 THEN: Q 8 WEEKS (WEEK 2)
     Route: 042
     Dates: start: 20210428
  3. INFLECTRA [Suspect]
     Active Substance: INFLIXIMAB-DYYB
     Dosage: 400 MG, WEEK 0, 2, AND 6 THEN: Q 8 WEEKS (WEEK 2)
     Route: 042
     Dates: start: 20210428
  4. INFLECTRA [Suspect]
     Active Substance: INFLIXIMAB-DYYB
     Dosage: 400 MG, WEEK 0, 2, AND 6 THEN: Q 8 WEEKS (WEEK 2)
     Route: 042
     Dates: start: 20210428
  5. INFLECTRA [Suspect]
     Active Substance: INFLIXIMAB-DYYB
     Dosage: 400 MG, WEEK 0, 2, AND 6 THEN: Q 8 WEEKS
     Route: 042
     Dates: start: 20210602
  6. MESALAMINE [Concomitant]
     Active Substance: MESALAMINE
     Dosage: UNK
  7. PENTASA [Concomitant]
     Active Substance: MESALAMINE
     Dosage: UNK
  8. PREDNISONE [Concomitant]
     Active Substance: PREDNISONE
     Dosage: 40 MG TAPERING DOSE(UNKNOWN FREQUENCY)

REACTIONS (6)
  - Condition aggravated [Not Recovered/Not Resolved]
  - Pharyngitis streptococcal [Recovering/Resolving]
  - Therapeutic product effect decreased [Unknown]
  - Pyrexia [Recovering/Resolving]
  - Off label use [Unknown]
  - Intentional product use issue [Unknown]

NARRATIVE: CASE EVENT DATE: 20210101
